FAERS Safety Report 6868932-2 (Version None)
Quarter: 2010Q3

REPORT INFORMATION
  Report Type: 
  Country: None (occurrence: None)
  Receive Date: 20100722
  Receipt Date: 20080724
  Transmission Date: 20110219
  Serious: Yes (Other)
  Sender: FDA-Public Use
  Company Number: US-PFIZER INC-2008048831

PATIENT
  Sex: Male
  Weight: 88 kg

DRUGS (13)
  1. CHANTIX [Suspect]
     Indication: SMOKING CESSATION THERAPY
     Dates: start: 20080501, end: 20080101
  2. METFORMIN [Concomitant]
  3. SEROQUEL [Concomitant]
  4. HYDROXYZINE [Concomitant]
  5. LANTUS [Concomitant]
  6. HUMULIN R [Concomitant]
  7. LEXAPRO [Concomitant]
  8. DIAZEPAM [Concomitant]
  9. DILTIAZEM [Concomitant]
  10. CYMBALTA [Concomitant]
  11. LORTAB [Concomitant]
  12. LIPITOR [Concomitant]
  13. INSULIN [Concomitant]

REACTIONS (1)
  - SUICIDAL IDEATION [None]
